FAERS Safety Report 5477748-3 (Version None)
Quarter: 2007Q4

REPORT INFORMATION
  Report Type: 
  Country: None (occurrence: None)
  Receive Date: 20071002
  Receipt Date: 20071002
  Transmission Date: 20080405
  Serious: Yes (Hospitalization, Disabling, Other)
  Sender: FDA-Public Use
  Company Number: None

PATIENT
  Age: 66 Year
  Sex: Male
  Weight: 74.8435 kg

DRUGS (16)
  1. WARFARIN SODIUM [Suspect]
     Indication: HYPERCOAGULATION
     Dosage: PO
     Route: 048
  2. GLUCOSAMINE [Concomitant]
  3. FLAXSEED [Concomitant]
  4. VIT D [Concomitant]
  5. LUPRON DEPOT-3 [Concomitant]
  6. FLOMAX [Concomitant]
  7. ZESTORETIC [Concomitant]
  8. TENORMIN [Concomitant]
  9. LEVOTHYROXINE SODIUM [Concomitant]
  10. ZYLOPRIM [Concomitant]
  11. METHOCARBAMOL [Concomitant]
  12. VITAMIN B COMPLEX CAP [Concomitant]
  13. MULTI-VITS [Concomitant]
  14. OMEGA-3 FATTY ACIDS [Concomitant]
  15. CELEBREX [Concomitant]
  16. PREVACID [Concomitant]

REACTIONS (2)
  - INTERNATIONAL NORMALISED RATIO INCREASED [None]
  - INTRAVENTRICULAR HAEMORRHAGE [None]
